FAERS Safety Report 5500572-X (Version None)
Quarter: 2007Q4

REPORT INFORMATION
  Report Type: 
  Country: None (occurrence: None)
  Receive Date: 20071029
  Receipt Date: 20071018
  Transmission Date: 20080405
  Serious: Yes (Disabling)
  Sender: FDA-Public Use
  Company Number: GB-JNJFOC-20071001346

PATIENT
  Sex: Female
  Weight: 81.5 kg

DRUGS (2)
  1. REMICADE [Suspect]
     Route: 042
  2. REMICADE [Suspect]
     Indication: SWEAT GLAND INFECTION
     Route: 042

REACTIONS (1)
  - SYNOVITIS [None]
